FAERS Safety Report 9442807 (Version 1)
Quarter: 2013Q3

REPORT INFORMATION
  Report Type: Spontaneous
  Country: US (occurrence: US)
  Receive Date: 20130806
  Receipt Date: 20130806
  Transmission Date: 20140515
  Serious: No
  Sender: FDA-Public Use
  Company Number: US-ABBOTT-12P-163-1006899-00

PATIENT
  Sex: Female

DRUGS (1)
  1. DEPAKOTE ER [Suspect]
     Indication: PRODUCT USED FOR UNKNOWN INDICATION

REACTIONS (3)
  - Burning sensation [Not Recovered/Not Resolved]
  - Alopecia [Not Recovered/Not Resolved]
  - Burning sensation [Not Recovered/Not Resolved]
